FAERS Safety Report 4657319-9 (Version None)
Quarter: 2005Q2

REPORT INFORMATION
  Report Type: 
  Country: None (occurrence: None)
  Receive Date: 20050408
  Receipt Date: 20041210
  Transmission Date: 20051028
  Serious: No
  Sender: FDA-Public Use
  Company Number: 235969K04USA

PATIENT
  Age: 39 Year
  Sex: Female

DRUGS (3)
  1. REBIF [Suspect]
     Indication: MULTIPLE SCLEROSIS
     Dosage: 44 MCG, 3 IN 1 WEEKS, 22 MCG3 IN 1 WEEKS
     Dates: start: 20040930, end: 20041205
  2. REBIF [Suspect]
     Indication: MULTIPLE SCLEROSIS
     Dosage: 44 MCG, 3 IN 1 WEEKS, 22 MCG3 IN 1 WEEKS
     Dates: start: 20041206
  3. IBUPROFEN [Concomitant]

REACTIONS (6)
  - APHTHOUS STOMATITIS [None]
  - FATIGUE [None]
  - FEELING ABNORMAL [None]
  - INFLUENZA LIKE ILLNESS [None]
  - PAIN [None]
  - SENSATION OF HEAVINESS [None]
